FAERS Safety Report 21749802 (Version 1)
Quarter: 2022Q4

REPORT INFORMATION
  Report Type: Report from Study
  Country: US (occurrence: US)
  Receive Date: 20221219
  Receipt Date: 20221219
  Transmission Date: 20230113
  Serious: No
  Sender: FDA-Public Use
  Company Number: US-ABBVIE-4196806

PATIENT
  Sex: Female

DRUGS (6)
  1. HUMIRA [Suspect]
     Active Substance: ADALIMUMAB
     Indication: Psoriatic arthropathy
     Route: 058
     Dates: start: 20220623
  2. HUMIRA [Suspect]
     Active Substance: ADALIMUMAB
     Indication: Rheumatoid arthritis
  3. DULOXETINE [Concomitant]
     Active Substance: DULOXETINE
     Indication: Anxiety
  4. Moderna [Concomitant]
     Indication: COVID-19 immunisation
     Dosage: VACCINE
     Route: 030
     Dates: start: 20210407, end: 20210407
  5. Moderna [Concomitant]
     Indication: COVID-19 immunisation
     Dosage: VACCINE
     Route: 030
     Dates: start: 20210507, end: 20210507
  6. Moderna [Concomitant]
     Indication: COVID-19 immunisation
     Dosage: BOOSTER
     Route: 030
     Dates: start: 20211118, end: 20211118

REACTIONS (3)
  - Anxiety [Unknown]
  - Psoriasis [Unknown]
  - Back pain [Unknown]

NARRATIVE: CASE EVENT DATE: 20220101
